FAERS Safety Report 7400778-9 (Version None)
Quarter: 2011Q2

REPORT INFORMATION
  Report Type: 
  Country: None (occurrence: None)
  Receive Date: 20110407
  Receipt Date: 20110331
  Transmission Date: 20111010
  Serious: Yes (Other)
  Sender: FDA-Public Use
  Company Number: B0705961A

PATIENT
  Age: 45 Year
  Sex: Female

DRUGS (3)
  1. PAXIL [Suspect]
     Indication: PANIC DISORDER
     Dosage: 20MG PER DAY
     Route: 048
  2. SOLANAX [Concomitant]
     Route: 048
  3. DEPAS [Concomitant]
     Dosage: 2.5MG PER DAY
     Route: 048

REACTIONS (4)
  - DYSTONIA [None]
  - MUSCULOSKELETAL STIFFNESS [None]
  - TREMOR [None]
  - HYPOAESTHESIA [None]
